FAERS Safety Report 26090261 (Version 1)
Quarter: 2025Q4

REPORT INFORMATION
  Report Type: Other
  Country: GB (occurrence: GB)
  Receive Date: 20251126
  Receipt Date: 20251126
  Transmission Date: 20260117
  Serious: Yes (Other)
  Sender: BIONPHARMA INC.
  Company Number: GB-Bion-015311

PATIENT
  Age: 54 Year
  Sex: Male

DRUGS (1)
  1. NAPROXEN SODIUM [Suspect]
     Active Substance: NAPROXEN SODIUM
     Indication: Arthralgia

REACTIONS (1)
  - Cutaneous vasculitis [Recovering/Resolving]
